FAERS Safety Report 24426302 (Version 3)
Quarter: 2025Q1

REPORT INFORMATION
  Report Type: Spontaneous
  Country: CA (occurrence: CA)
  Receive Date: 20241011
  Receipt Date: 20250109
  Transmission Date: 20250409
  Serious: Yes (Other)
  Sender: CELLTRION
  Company Number: CA-PFIZER INC-202400241994

PATIENT

DRUGS (5)
  1. INFLECTRA [Suspect]
     Active Substance: INFLIXIMAB-DYYB
     Indication: Colitis ulcerative
     Route: 042
     Dates: start: 20240820, end: 20240820
  2. INFLECTRA [Suspect]
     Active Substance: INFLIXIMAB-DYYB
     Route: 042
     Dates: start: 20240904
  3. INFLECTRA [Suspect]
     Active Substance: INFLIXIMAB-DYYB
     Route: 042
     Dates: start: 20241001, end: 20241001
  4. PENTASA [Concomitant]
     Active Substance: MESALAMINE
     Dates: start: 2016
  5. PREDNISONE [Concomitant]
     Active Substance: PREDNISONE
     Dates: start: 202408

REACTIONS (8)
  - Atrial fibrillation [Recovering/Resolving]
  - Malignant melanoma [Unknown]
  - C-reactive protein abnormal [Unknown]
  - Urinary tract infection [Unknown]
  - Localised infection [Recovering/Resolving]
  - Anal haemorrhage [Unknown]
  - Condition aggravated [Not Recovered/Not Resolved]
  - Off label use [Unknown]

NARRATIVE: CASE EVENT DATE: 20240101
